FAERS Safety Report 13843695 (Version 4)
Quarter: 2017Q3

REPORT INFORMATION
  Report Type: Report from Study
  Country: US (occurrence: US)
  Receive Date: 20170808
  Receipt Date: 20170915
  Transmission Date: 20171127
  Serious: Yes (Hospitalization)
  Sender: FDA-Public Use
  Company Number: US-ASTRAZENECA-2014SE95493

PATIENT
  Age: 1040 Month
  Sex: Female
  Weight: 68.9 kg

DRUGS (8)
  1. PULMICORT TURBUHALER [Suspect]
     Active Substance: BUDESONIDE
     Indication: BRONCHITIS CHRONIC
     Dosage: 0.25MG/2ML TWO TIMES A DAY
     Route: 055
     Dates: start: 201412
  2. PULMICORT TURBUHALER [Suspect]
     Active Substance: BUDESONIDE
     Indication: EMPHYSEMA
     Dosage: 0.25MG/2ML TWO TIMES A DAY
     Route: 055
     Dates: start: 201412
  3. PULMICORT TURBUHALER [Suspect]
     Active Substance: BUDESONIDE
     Indication: CHRONIC OBSTRUCTIVE PULMONARY DISEASE
     Dosage: 0.25MG/2ML TWO TIMES A DAY
     Route: 055
     Dates: start: 201412
  4. PULMICORT TURBUHALER [Suspect]
     Active Substance: BUDESONIDE
     Indication: BRONCHITIS CHRONIC
     Dosage: 180 MCG 2 PUFFS TWICE PER DAY
     Route: 055
  5. CALCIUM [Concomitant]
     Active Substance: CALCIUM
     Route: 065
  6. PULMICORT TURBUHALER [Suspect]
     Active Substance: BUDESONIDE
     Indication: EMPHYSEMA
     Dosage: 180 MCG 2 PUFFS TWICE PER DAY
     Route: 055
  7. ALBUTEROL. [Concomitant]
     Active Substance: ALBUTEROL
     Dosage: DAILY
     Route: 055
     Dates: start: 2014
  8. PULMICORT TURBUHALER [Suspect]
     Active Substance: BUDESONIDE
     Indication: CHRONIC OBSTRUCTIVE PULMONARY DISEASE
     Dosage: 180 MCG 2 PUFFS TWICE PER DAY
     Route: 055

REACTIONS (14)
  - Anxiety [Unknown]
  - Pneumonia [Unknown]
  - Hypoaesthesia [Unknown]
  - Pain in extremity [Unknown]
  - Hyperhidrosis [Unknown]
  - Cough [Not Recovered/Not Resolved]
  - Nervousness [Unknown]
  - Off label use [Unknown]
  - Feeling hot [Unknown]
  - Femur fracture [Unknown]
  - Drug administered to patient of inappropriate age [Unknown]
  - Fall [Unknown]
  - Malaise [Unknown]
  - Hip fracture [Unknown]

NARRATIVE: CASE EVENT DATE: 201412
